FAERS Safety Report 24407621 (Version 1)
Quarter: 2024Q4

REPORT INFORMATION
  Report Type: Spontaneous
  Country: US (occurrence: None)
  Receive Date: 20241007
  Receipt Date: 20241007
  Transmission Date: 20250115
  Serious: No
  Sender: Public
  Company Number: None

PATIENT
  Age: 44 Year
  Sex: Female
  Weight: 92.25 kg

DRUGS (4)
  1. INGREZZA [Suspect]
     Active Substance: VALBENAZINE
     Indication: Tic
     Dosage: FREQUENCY : DAILY;?
     Route: 048
     Dates: start: 20240828, end: 20240914
  2. ALLOPURINOL [Concomitant]
     Active Substance: ALLOPURINOL
  3. LISINOPRIL [Concomitant]
     Active Substance: LISINOPRIL
  4. MINERALS\VITAMINS [Concomitant]
     Active Substance: MINERALS\VITAMINS

REACTIONS (4)
  - Lethargy [None]
  - Urticaria [None]
  - Irritability [None]
  - Restlessness [None]

NARRATIVE: CASE EVENT DATE: 20240914
